FAERS Safety Report 10264231 (Version 1)
Quarter: 2014Q2

REPORT INFORMATION
  Report Type: Spontaneous
  Country: GB (occurrence: GB)
  Receive Date: 20140627
  Receipt Date: 20140627
  Transmission Date: 20141212
  Serious: Yes (Other)
  Sender: FDA-Public Use
  Company Number: GB-RANBAXY-2014RR-82832

PATIENT
  Sex: 0

DRUGS (6)
  1. FLUCONAZOLE [Suspect]
     Indication: EVIDENCE BASED TREATMENT
     Dosage: UNK
     Route: 065
  2. FLUCONAZOLE [Suspect]
     Indication: ASPERGILLUS INFECTION
  3. FLUCONAZOLE [Suspect]
     Indication: SYSTEMIC CANDIDA
     Dosage: }200 MG
     Route: 048
  4. VFEND [Suspect]
     Indication: ASPERGILLUS INFECTION
     Dosage: UNK
     Route: 065
  5. VFEND [Suspect]
     Indication: EVIDENCE BASED TREATMENT
  6. VFEND [Suspect]
     Indication: SYSTEMIC CANDIDA

REACTIONS (2)
  - Off label use [Unknown]
  - Neutropenia [Unknown]
